FAERS Safety Report 8917589 (Version 2)
Quarter: 2013Q2

REPORT INFORMATION
  Report Type: Spontaneous
  Country: GB (occurrence: GB)
  Receive Date: 20121120
  Receipt Date: 20130618
  Transmission Date: 20140414
  Serious: Yes (Hospitalization, Other)
  Sender: FDA-Public Use
  Company Number: GB-JNJFOC-20121107746

PATIENT
  Age: 44 Year
  Sex: Male
  Weight: 147.4 kg

DRUGS (6)
  1. GOLIMUMAB [Suspect]
     Indication: PSORIATIC ARTHROPATHY
     Dosage: PATIENT ON DRUG FOR 4 TO 5 MONTHS
     Route: 058
     Dates: start: 201207
  2. METHOTREXATE [Concomitant]
     Indication: PSORIATIC ARTHROPATHY
     Route: 065
  3. PREDNISOLONE [Concomitant]
     Dosage: ON THIS DOSE ON ADMISSION ON 02-NOV-2012
     Route: 065
     Dates: start: 20121102
  4. ESOMEPRAZOLE [Concomitant]
     Route: 065
  5. FLUOXETINE [Concomitant]
     Route: 065
  6. AMITRIPTYLINE [Concomitant]
     Route: 065

REACTIONS (9)
  - Hepatic steatosis [Unknown]
  - Convulsion [Unknown]
  - Loss of consciousness [Not Recovered/Not Resolved]
  - Headache [Unknown]
  - Back pain [Unknown]
  - Hiatus hernia [Unknown]
  - Gastritis [Unknown]
  - Orthostatic hypotension [Unknown]
  - Sinus tachycardia [Unknown]
